FAERS Safety Report 9817850 (Version 1)
Quarter: 2014Q1

REPORT INFORMATION
  Report Type: Spontaneous
  Country: US (occurrence: None)
  Receive Date: 20140110
  Receipt Date: 20140110
  Transmission Date: 20141002
  Serious: Yes (Hospitalization)
  Sender: FDA-Public Use
  Company Number: None

PATIENT
  Age: 58 Year
  Sex: Male

DRUGS (3)
  1. INCIVEK 375MG VERTEX [Suspect]
     Indication: HEPATITIS C
     Dosage: 2 PILLS
     Route: 048
  2. PEG-INTRON [Concomitant]
  3. RIBAVIRIN [Concomitant]

REACTIONS (2)
  - Atrial flutter [None]
  - Anaemia [None]
